FAERS Safety Report 5127478-2 (Version None)
Quarter: 2006Q4

REPORT INFORMATION
  Report Type: 
  Country: None (occurrence: None)
  Receive Date: 20061016
  Receipt Date: 20060726
  Transmission Date: 20070319
  Serious: Yes (Other)
  Sender: FDA-Public Use
  Company Number: PHEH2006US09572

PATIENT
  Age: 86 Year
  Sex: Female
  Weight: 36.281 kg

DRUGS (5)
  1. AREDIA [Suspect]
     Indication: OSTEOPOROSIS PROPHYLAXIS
     Dosage: Q3MOS
     Dates: end: 20050801
  2. ZOLOFT [Concomitant]
  3. MOTOFEN [Concomitant]
  4. METOPROLOL TARTRATE [Concomitant]
  5. NORVASC [Concomitant]

REACTIONS (15)
  - BONE DEBRIDEMENT [None]
  - BONE DISORDER [None]
  - BONE EROSION [None]
  - EMPHYSEMA [None]
  - ERYTHEMA [None]
  - GINGIVAL INFECTION [None]
  - IMPAIRED HEALING [None]
  - LYMPHADENOPATHY [None]
  - OSTEOMYELITIS ACUTE [None]
  - OSTEONECROSIS [None]
  - PAIN IN JAW [None]
  - SOFT TISSUE INFECTION [None]
  - SWELLING [None]
  - TOOTH EXTRACTION [None]
  - WOUND DEBRIDEMENT [None]
